FAERS Safety Report 9782465 (Version 2)
Quarter: 2013Q4

REPORT INFORMATION
  Report Type: Report from Study
  Country: US (occurrence: US)
  Receive Date: 20131226
  Receipt Date: 20131226
  Transmission Date: 20140711
  Serious: No
  Sender: FDA-Public Use
  Company Number: US-JNJFOC-20131019340

PATIENT
  Sex: Male

DRUGS (3)
  1. DURAGESIC [Suspect]
     Indication: PAIN
     Route: 062
  2. DURAGESIC [Suspect]
     Indication: PAIN
     Route: 062
     Dates: start: 20110601
  3. LORTAB [Concomitant]
     Indication: SPINAL COLUMN STENOSIS
     Route: 065
     Dates: start: 200404

REACTIONS (4)
  - Hypertension [Recovered/Resolved]
  - Drug dose omission [Unknown]
  - Product adhesion issue [Unknown]
  - Wrong technique in drug usage process [Unknown]
